FAERS Safety Report 5046936-2 (Version None)
Quarter: 2006Q2

REPORT INFORMATION
  Report Type: 
  Country: None (occurrence: None)
  Receive Date: 20060630
  Receipt Date: 20060621
  Transmission Date: 20061013
  Serious: Yes (Other)
  Sender: FDA-Public Use
  Company Number: 2006079438

PATIENT
  Sex: 0

DRUGS (2)
  1. HALCION [Suspect]
     Dosage: ORAL
     Route: 048
  2. DEPAS (ETIZOLAM) [Suspect]
     Dosage: ORAL
     Route: 048

REACTIONS (1)
  - OVERDOSE [None]
